FAERS Safety Report 9078902 (Version 1)
Quarter: 2013Q1

REPORT INFORMATION
  Report Type: Report from Study
  Country: US (occurrence: US)
  Receive Date: 20130130
  Receipt Date: 20130130
  Transmission Date: 20140127
  Serious: No
  Sender: FDA-Public Use
  Company Number: US-ABBOTT-12P-163-0967676-00

PATIENT
  Age: 51 Year
  Sex: Female

DRUGS (7)
  1. HUMIRA 40 MG/0.8 ML PEN [Suspect]
     Indication: CROHN^S DISEASE
     Dates: start: 20120713
  2. MERCAPTOPURINE [Concomitant]
     Indication: CROHN^S DISEASE
     Dosage: 75MG DAILY
  3. PANTOPRAZOLE [Concomitant]
     Indication: CROHN^S DISEASE
  4. ATENOLOL [Concomitant]
     Indication: HYPERTENSION
     Dosage: 100MG DAILY
  5. ESTRADIOL [Concomitant]
     Indication: HOT FLUSH
     Dosage: 0.5MG DAILY
  6. NORTRIPTYLINE [Concomitant]
     Indication: PAIN
     Dosage: DAILY
  7. MELOXICAM [Concomitant]
     Indication: PRODUCT USED FOR UNKNOWN INDICATION
     Dosage: 7 TABS DAILY

REACTIONS (1)
  - Injection site pain [Not Recovered/Not Resolved]
